FAERS Safety Report 7326681-0 (Version None)
Quarter: 2011Q1

REPORT INFORMATION
  Report Type: 
  Country: None (occurrence: None)
  Receive Date: 20110216
  Receipt Date: 20110203
  Transmission Date: 20110831
  Serious: Yes (Other)
  Sender: FDA-Public Use
  Company Number: 2011SP005325

PATIENT

DRUGS (1)
  1. TEMOZOLOMIDE [Suspect]
     Indication: PITUITARY TUMOUR
     Dosage: 75 MG/M2, QD

REACTIONS (3)
  - ADRENAL INSUFFICIENCY [None]
  - INTRACRANIAL HYPOTENSION [None]
  - DEAFNESS NEUROSENSORY [None]
